FAERS Safety Report 23410738 (Version 1)
Quarter: 2024Q1

REPORT INFORMATION
  Report Type: Spontaneous
  Country: US (occurrence: US)
  Receive Date: 20240117
  Receipt Date: 20240117
  Transmission Date: 20240410
  Serious: No
  Sender: FDA-Public Use
  Company Number: US-SK LIFE SCIENCE, INC-SKPVG-2023-000060

PATIENT

DRUGS (4)
  1. XCOPRI [Suspect]
     Active Substance: CENOBAMATE
     Indication: Partial seizures
     Dosage: 6.25 MILLIGRAM, HALF THE LOWEST PILL SIZE
     Route: 048
     Dates: start: 20230110
  2. XCOPRI [Suspect]
     Active Substance: CENOBAMATE
     Dosage: 6.25 MILLIGRAM, QD, DAILY
     Route: 065
     Dates: start: 20230115, end: 20230121
  3. OXCARBAZEPINE [Concomitant]
     Active Substance: OXCARBAZEPINE
     Indication: Product used for unknown indication
     Dosage: 600 MILLIGRAM, BID
     Route: 065
  4. LEVETIRACETAM [Concomitant]
     Active Substance: LEVETIRACETAM
     Indication: Product used for unknown indication
     Dosage: 1500 MILLIGRAM, BID
     Route: 065

REACTIONS (10)
  - Off label use [Recovered/Resolved]
  - Wrong technique in product usage process [Recovered/Resolved]
  - Discomfort [Unknown]
  - Swelling face [Recovered/Resolved]
  - Lip swelling [Recovered/Resolved]
  - Paraesthesia [Unknown]
  - Rash [Recovering/Resolving]
  - Euphoric mood [Unknown]
  - Balance disorder [Unknown]
  - Dizziness [Recovered/Resolved]

NARRATIVE: CASE EVENT DATE: 20230101
